FAERS Safety Report 19294722 (Version 1)
Quarter: 2021Q2

REPORT INFORMATION
  Report Type: Spontaneous
  Country: US (occurrence: US)
  Receive Date: 20210524
  Receipt Date: 20210524
  Transmission Date: 20210717
  Serious: Yes (Other)
  Sender: FDA-Public Use
  Company Number: None

PATIENT
  Age: 73 Year
  Sex: Female

DRUGS (6)
  1. ISOSORB MONO ER [Concomitant]
     Active Substance: ISOSORBIDE MONONITRATE
  2. NOVOLIN R [Concomitant]
     Active Substance: INSULIN HUMAN
  3. REPATHA [Suspect]
     Active Substance: EVOLOCUMAB
     Indication: GONOCOCCAL HEART DISEASE
     Dosage: ?          OTHER FREQUENCY:EVERY 2 WEEKS;?
     Route: 058
     Dates: start: 20200505
  4. CARVEDILOL ER [Concomitant]
  5. DILTIAZEM ER [Concomitant]
     Active Substance: DILTIAZEM
  6. CLOPIDOGREL [Concomitant]
     Active Substance: CLOPIDOGREL BISULFATE

REACTIONS (2)
  - Treatment delayed [None]
  - Cerebrovascular accident [None]
